FAERS Safety Report 24253245 (Version 1)
Quarter: 2024Q3

REPORT INFORMATION
  Report Type: Spontaneous
  Country: US (occurrence: US)
  Receive Date: 20240827
  Receipt Date: 20240827
  Transmission Date: 20241017
  Serious: No
  Sender: NOBELPHARMA
  Company Number: US-Nobelpharma America, LLC-NPA-2024-00734

PATIENT
  Sex: Female

DRUGS (1)
  1. HYFTOR [Suspect]
     Active Substance: SIROLIMUS
     Indication: Lymphatic malformation
     Dosage: APPLY TOPICALLY 1 TIME A DAY. USE SMALLEST AMOUNT POSSIBLE FOR EACH APPLICATION, NOT MORE THAN A DIM
     Route: 003
     Dates: start: 20240124

REACTIONS (6)
  - Product dose omission issue [None]
  - Off label use [None]
  - Product use issue [None]
  - Drug ineffective for unapproved indication [None]
  - Off label use [None]
  - Skin haemorrhage [Unknown]
